FAERS Safety Report 9990820 (Version 1)
Quarter: 2014Q1

REPORT INFORMATION
  Report Type: Spontaneous
  Country: US (occurrence: None)
  Receive Date: 20140123
  Receipt Date: 20140123
  Transmission Date: 20141002
  Serious: Yes (Hospitalization)
  Sender: FDA-Public Use
  Company Number: UTC-038772

PATIENT
  Age: 70 Year
  Sex: Male
  Weight: 68.2 kg

DRUGS (2)
  1. TYVASO (6 MICROGRAM, AEROSOL FOR INHALATION) (TREPROSTINIL SODIUM) [Suspect]
     Indication: PULMONARY ARTERIAL HYPERTENSION
     Dosage: 72 MCG (18 MCG, 4 IN 1 D), INHALATION
     Dates: start: 20130628
  2. LETAIRIS (AMBRISENTAN) (TABLETS) [Concomitant]

REACTIONS (6)
  - Local swelling [None]
  - Vision blurred [None]
  - Cataract [None]
  - Anaemia [None]
  - Fatigue [None]
  - Cough [None]
